FAERS Safety Report 18682836 (Version 1)
Quarter: 2020Q4

REPORT INFORMATION
  Report Type: Spontaneous
  Country: CA (occurrence: CA)
  Receive Date: 20201230
  Receipt Date: 20201230
  Transmission Date: 20210114
  Serious: Yes (Other)
  Sender: FDA-Public Use
  Company Number: PHBS1991CA00846

PATIENT
  Age: 52 Year
  Sex: Male

DRUGS (3)
  1. DAPSONE. [Suspect]
     Active Substance: DAPSONE
     Indication: BORDERLINE LEPROSY
     Dosage: UNK
     Route: 065
  2. CLOFAZIMINE [Suspect]
     Active Substance: CLOFAZIMINE
     Indication: BORDERLINE LEPROSY
     Dosage: UNK
     Route: 065
  3. RIFAMPICIN [Suspect]
     Active Substance: RIFAMPIN
     Indication: BORDERLINE LEPROSY
     Dosage: UNK
     Route: 065

REACTIONS (2)
  - Neuritis [Unknown]
  - Lepromatous leprosy [Unknown]

NARRATIVE: CASE EVENT DATE: 1990
